FAERS Safety Report 20709483 (Version 1)
Quarter: 2022Q2

REPORT INFORMATION
  Report Type: Spontaneous
  Country: US (occurrence: None)
  Receive Date: 20220413
  Receipt Date: 20220413
  Transmission Date: 20220721
  Serious: Yes (unspecified)
  Sender: FDA-Public Use
  Company Number: None

PATIENT
  Age: 50 Year
  Sex: Female
  Weight: 82.7 kg

DRUGS (1)
  1. PACLITAXEL [Suspect]
     Active Substance: PACLITAXEL
     Indication: Malignant peritoneal neoplasm
     Dosage: OTHER FREQUENCY : WEEKLY;?
     Route: 041
     Dates: start: 20220411

REACTIONS (5)
  - Infusion related reaction [None]
  - Abdominal discomfort [None]
  - Dyspnoea [None]
  - Erythema [None]
  - Oxygen saturation decreased [None]

NARRATIVE: CASE EVENT DATE: 20220411
